FAERS Safety Report 22142011 (Version 1)
Quarter: 2023Q1

REPORT INFORMATION
  Report Type: Spontaneous
  Country: CN (occurrence: CN)
  Receive Date: 20230327
  Receipt Date: 20230327
  Transmission Date: 20230418
  Serious: Yes (Life-Threatening, Other)
  Sender: FDA-Public Use
  Company Number: CN-MYLANLABS-2023M1031676

PATIENT
  Age: 31 Year
  Sex: Male
  Weight: 60 kg

DRUGS (1)
  1. AZELASTINE [Suspect]
     Active Substance: AZELASTINE
     Indication: Conjunctivitis allergic
     Dosage: 1 GTT DROPS, TID
     Dates: start: 20230116, end: 20230319

REACTIONS (1)
  - Anaphylactic reaction [Recovering/Resolving]

NARRATIVE: CASE EVENT DATE: 20230116
